FAERS Safety Report 15903614 (Version 2)
Quarter: 2019Q1

REPORT INFORMATION
  Report Type: Report from Study
  Country: ES (occurrence: ES)
  Receive Date: 20190203
  Receipt Date: 20190215
  Transmission Date: 20190417
  Serious: Yes (Hospitalization)
  Sender: FDA-Public Use
  Company Number: ES-ACCORD-105190

PATIENT
  Age: 91 Year
  Sex: Female

DRUGS (7)
  1. FOLI-DOCE [Concomitant]
     Active Substance: CYANOCOBALAMIN\FOLIC ACID
  2. DIGOXIN. [Concomitant]
     Active Substance: DIGOXIN
  3. SERTRALINE [Suspect]
     Active Substance: SERTRALINE HYDROCHLORIDE
     Indication: PRODUCT USED FOR UNKNOWN INDICATION
     Dates: start: 2017
  4. FOLI-12 [Concomitant]
  5. ADIRO [Interacting]
     Active Substance: ASPIRIN
     Indication: CEREBROVASCULAR ACCIDENT
     Route: 048
     Dates: start: 2017, end: 20171129
  6. MARIXINO [Concomitant]
     Indication: COGNITIVE DISORDER
  7. QUETIAPINE/QUETIAPINE FUMARATE [Concomitant]

REACTIONS (2)
  - Drug interaction [Unknown]
  - Haematoma [Recovering/Resolving]

NARRATIVE: CASE EVENT DATE: 201711
